FAERS Safety Report 9542978 (Version 7)
Quarter: 2016Q4

REPORT INFORMATION
  Report Type: Report from Study
  Country: NL (occurrence: NL)
  Receive Date: 20130923
  Receipt Date: 20161007
  Transmission Date: 20170207
  Serious: Yes (Hospitalization)
  Sender: FDA-Public Use
  Company Number: NL-PFIZER INC-2013266950

PATIENT
  Age: 46 Year
  Sex: Male
  Weight: 65 kg

DRUGS (1)
  1. CRIZOTINIB [Suspect]
     Active Substance: CRIZOTINIB
     Indication: CLEAR CELL SARCOMA OF SOFT TISSUE
     Dosage: 250 MG TWICE DAILY
     Route: 048
     Dates: start: 20130827, end: 20130910

REACTIONS (3)
  - Deep vein thrombosis [Recovered/Resolved with Sequelae]
  - Nausea [Recovered/Resolved]
  - Dysphagia [Recovered/Resolved with Sequelae]

NARRATIVE: CASE EVENT DATE: 20130909
